FAERS Safety Report 5664087-0 (Version None)
Quarter: 2008Q1

REPORT INFORMATION
  Report Type: 
  Country: None (occurrence: None)
  Receive Date: 20080312
  Receipt Date: 20080227
  Transmission Date: 20080703
  Serious: Yes (Hospitalization)
  Sender: FDA-Public Use
  Company Number: A-US2008-19675

PATIENT
  Age: 53 Year
  Sex: Female

DRUGS (2)
  1. VENTAVIS [Suspect]
     Indication: PULMONARY HYPERTENSION
     Dosage: 2.5 UG, 6-9 X DAY, RESPIRATORY
     Route: 055
     Dates: start: 20070417
  2. TRACLEER [Concomitant]

REACTIONS (3)
  - ASTHMA [None]
  - CELLULITIS [None]
  - TACHYCARDIA [None]
